FAERS Safety Report 18261558 (Version 1)
Quarter: 2020Q3

REPORT INFORMATION
  Report Type: Spontaneous
  Country: CA (occurrence: CA)
  Receive Date: 20200914
  Receipt Date: 20200914
  Transmission Date: 20201103
  Serious: Yes (Other)
  Sender: FDA-Public Use
  Company Number: CA-ROCHE-2674272

PATIENT
  Age: 42 Year
  Sex: Female
  Weight: 81 kg

DRUGS (20)
  1. COENZYME Q10 [Concomitant]
     Active Substance: DIETARY SUPPLEMENT\UBIDECARENONE
  2. HIDROXICLOROQUINA SULFATO [Concomitant]
     Active Substance: HYDROXYCHLOROQUINE SULFATE
  3. VENTOLIN [Concomitant]
     Active Substance: ALBUTEROL SULFATE
  4. ARAVA [Suspect]
     Active Substance: LEFLUNOMIDE
     Indication: PRODUCT USED FOR UNKNOWN INDICATION
     Route: 065
  5. NUTRASEA [Concomitant]
  6. PREDNISONE. [Concomitant]
     Active Substance: PREDNISONE
  7. ENBREL [Suspect]
     Active Substance: ETANERCEPT
     Indication: RHEUMATOID ARTHRITIS
     Route: 058
  8. CIMZIA [Suspect]
     Active Substance: CERTOLIZUMAB PEGOL
     Indication: RHEUMATOID ARTHRITIS
     Route: 058
  9. PERCOCET [Suspect]
     Active Substance: ACETAMINOPHEN\OXYCODONE HYDROCHLORIDE
     Indication: PRODUCT USED FOR UNKNOWN INDICATION
     Route: 065
  10. SIMPONI [Suspect]
     Active Substance: GOLIMUMAB
     Indication: PRODUCT USED FOR UNKNOWN INDICATION
     Route: 058
  11. CHLORAPREP [Suspect]
     Active Substance: CHLORHEXIDINE GLUCONATE\ISOPROPYL ALCOHOL
     Indication: PRODUCT USED FOR UNKNOWN INDICATION
     Route: 061
  12. METHOTREXATE. [Suspect]
     Active Substance: METHOTREXATE
     Indication: PRODUCT USED FOR UNKNOWN INDICATION
     Route: 065
  13. REACTINE (CANADA) [Concomitant]
     Active Substance: CETIRIZINE HYDROCHLORIDE
  14. TYLENOL [Concomitant]
     Active Substance: ACETAMINOPHEN
  15. ACTEMRA [Suspect]
     Active Substance: TOCILIZUMAB
     Indication: PRODUCT USED FOR UNKNOWN INDICATION
     Route: 065
  16. ORENCIA [Suspect]
     Active Substance: ABATACEPT
     Indication: PRODUCT USED FOR UNKNOWN INDICATION
     Route: 065
  17. IBUPROFEN. [Concomitant]
     Active Substance: IBUPROFEN
  18. VITAMIN C [Concomitant]
     Active Substance: ASCORBIC ACID
  19. ZOPICLONE [Concomitant]
     Active Substance: ZOPICLONE
  20. PANTOPRAZOLE [Concomitant]
     Active Substance: PANTOPRAZOLE

REACTIONS (21)
  - Abdominal pain upper [Unknown]
  - Body temperature increased [Unknown]
  - Joint swelling [Unknown]
  - Pain [Unknown]
  - Sinusitis [Unknown]
  - Insomnia [Unknown]
  - Lower respiratory tract infection [Unknown]
  - Night sweats [Unknown]
  - Headache [Unknown]
  - Diarrhoea [Unknown]
  - Muscle spasticity [Unknown]
  - Off label use [Unknown]
  - Rash [Unknown]
  - Respiratory disorder [Unknown]
  - Back pain [Unknown]
  - Urticaria [Unknown]
  - Asthenia [Unknown]
  - Ear pain [Unknown]
  - Peripheral swelling [Unknown]
  - Vomiting [Unknown]
  - Pruritus [Unknown]
